FAERS Safety Report 7469796 (Version 4)
Quarter: 2013Q1

REPORT INFORMATION
  Report Type: Report from Study
  Country: DE (occurrence: DE)
  Receive Date: 20100713
  Receipt Date: 20130207
  Transmission Date: 20140127
  Serious: Yes (Hospitalization)
  Sender: FDA-Public Use
  Company Number: DE-BRISTOL-MYERS SQUIBB COMPANY-15180672

PATIENT
  Age: 73 Year
  Sex: Female

DRUGS (13)
  1. ABATACEPT [Suspect]
     Indication: RHEUMATOID ARTHRITIS
     Dosage: INT:JAN9,REST:5MR9,INT:19OC9(CUM.DOSE:NOV8-OCT9:8250MG)RESTR:5MAY9 ALSO14JAN10.
     Route: 042
     Dates: start: 20081120
  2. METHOTREXATE [Suspect]
     Indication: RHEUMATOID ARTHRITIS
     Dosage: INTERR AND RESRTED ON FEB2009:05MAR2009-15MG
     Route: 048
     Dates: start: 200401
  3. METHYLPREDNISOLONE [Concomitant]
     Dosage: BEFORE 2003
  4. CALCIUM CARBONATE + CHOLECALCIFEROL [Concomitant]
     Dosage: BEFORE 2003?CALCILAC
  5. BISOPROLOL [Concomitant]
     Dosage: BISOPROLOL 5
     Dates: start: 200305
  6. INSPRA [Concomitant]
     Dosage: INSPRA 25
     Dates: start: 200606
  7. PANTOZOL [Concomitant]
     Dosage: PANTOZOL 20
     Dates: start: 200606
  8. ASS 100 [Concomitant]
     Dates: start: 200606
  9. FLUVASTATIN [Concomitant]
     Dosage: LOCOL 80
     Dates: start: 200606
  10. LISINOPRIL [Concomitant]
     Dosage: LISINOPRIL 5
     Dates: start: 200611
  11. PENTALONG [Concomitant]
     Dosage: PENTALONG 80
     Dates: start: 200701
  12. PROTELOS [Concomitant]
     Dates: start: 200801
  13. REMERGIL [Concomitant]
     Dosage: REMERGIL 30
     Dates: start: 200810

REACTIONS (7)
  - Major depression [Not Recovered/Not Resolved]
  - Panic attack [Not Recovered/Not Resolved]
  - Dizziness [Recovered/Resolved]
  - Asthenia [Unknown]
  - Nasopharyngitis [Recovered/Resolved]
  - Weight decreased [Unknown]
  - Femur fracture [Unknown]
